FAERS Safety Report 8495560-8 (Version None)
Quarter: 2012Q3

REPORT INFORMATION
  Report Type: 
  Country: None (occurrence: None)
  Receive Date: 20120709
  Receipt Date: 20120704
  Transmission Date: 20120928
  Serious: Yes (Other)
  Sender: FDA-Public Use
  Company Number: CA-ROCHE-1021538

PATIENT
  Sex: Female
  Weight: 29.056 kg

DRUGS (3)
  1. SYNTHROID [Concomitant]
     Route: 065
  2. AVASTIN [Suspect]
     Indication: GLIOBLASTOMA
     Route: 042
     Dates: start: 20111110
  3. STEROID (NAME UNKNOWN) [Concomitant]
     Route: 065

REACTIONS (2)
  - PLATELET COUNT DECREASED [None]
  - DISEASE PROGRESSION [None]
